FAERS Safety Report 9795568 (Version 1)
Quarter: 2014Q1

REPORT INFORMATION
  Report Type: Spontaneous
  Country: US (occurrence: US)
  Receive Date: 20140103
  Receipt Date: 20140103
  Transmission Date: 20141002
  Serious: Yes (Other)
  Sender: FDA-Public Use
  Company Number: US-BAYER-2013-159015

PATIENT
  Sex: Female

DRUGS (2)
  1. CIPRO [Suspect]
     Indication: CLOSTRIDIUM DIFFICILE INFECTION
  2. FLAGYL [Suspect]
     Indication: CLOSTRIDIUM DIFFICILE INFECTION

REACTIONS (1)
  - Clostridium difficile infection [None]
